FAERS Safety Report 19891562 (Version 1)
Quarter: 2021Q3

REPORT INFORMATION
  Report Type: Spontaneous
  Country: US (occurrence: US)
  Receive Date: 20210928
  Receipt Date: 20210928
  Transmission Date: 20211014
  Serious: No
  Sender: FDA-Public Use
  Company Number: US-BIOGEN-2021BI01029563

PATIENT
  Age: 60 Year
  Sex: Female

DRUGS (7)
  1. VUMERITY [Suspect]
     Active Substance: DIROXIMEL FUMARATE
     Indication: MULTIPLE SCLEROSIS
     Route: 048
     Dates: start: 20210426
  2. VUMERITY [Suspect]
     Active Substance: DIROXIMEL FUMARATE
     Dosage: TAKE 2 CAPSLUES BY MOUTH TWICE A DAY
     Route: 048
  3. TIZANIDINE HCL [Concomitant]
     Active Substance: TIZANIDINE HYDROCHLORIDE
     Route: 065
  4. CETRIZINE HCL [Concomitant]
     Route: 065
  5. LISINOPRIL. [Concomitant]
     Active Substance: LISINOPRIL
     Route: 065
  6. LYRICA [Concomitant]
     Active Substance: PREGABALIN
     Route: 065
  7. JOLIVETTE [Concomitant]
     Active Substance: NORETHINDRONE
     Route: 065

REACTIONS (6)
  - Muscle twitching [Unknown]
  - Tremor [Unknown]
  - Motor dysfunction [Unknown]
  - Muscle spasms [Unknown]
  - Muscle tightness [Unknown]
  - Nausea [Unknown]

NARRATIVE: CASE EVENT DATE: 202104
